FAERS Safety Report 9862018 (Version 1)
Quarter: 2014Q1

REPORT INFORMATION
  Report Type: Spontaneous
  Country: JP (occurrence: JP)
  Receive Date: 20140203
  Receipt Date: 20140203
  Transmission Date: 20141002
  Serious: Yes (Other)
  Sender: FDA-Public Use
  Company Number: JP-ELI_LILLY_AND_COMPANY-JP201401008222

PATIENT
  Sex: Male

DRUGS (2)
  1. GEMCITABINE HYDROCHLORIDE [Suspect]
     Indication: CHOLANGIOCARCINOMA
     Dosage: UNK
     Route: 042
  2. TS 1 [Concomitant]
     Indication: CHOLANGIOCARCINOMA
     Dosage: UNK

REACTIONS (1)
  - Enterocolitis haemorrhagic [Unknown]
